FAERS Safety Report 16419248 (Version 3)
Quarter: 2019Q3

REPORT INFORMATION
  Report Type: Spontaneous
  Country: GR (occurrence: GR)
  Receive Date: 20190612
  Receipt Date: 20190806
  Transmission Date: 20191004
  Serious: Yes (Other)
  Sender: FDA-Public Use
  Company Number: GR-ACCORD-132129

PATIENT
  Age: 46 Year
  Sex: Female

DRUGS (5)
  1. EXEMESTANE. [Suspect]
     Active Substance: EXEMESTANE
     Indication: BREAST CANCER
     Route: 065
     Dates: start: 201201, end: 201403
  2. EVEROLIMUS. [Suspect]
     Active Substance: EVEROLIMUS
     Indication: BREAST CANCER
     Route: 065
     Dates: start: 201201, end: 201304
  3. EXEMESTANE. [Concomitant]
     Active Substance: EXEMESTANE
     Indication: BREAST CANCER
     Dates: start: 201201, end: 201403
  4. ZOLEDRONIC ACID [Suspect]
     Active Substance: ZOLEDRONIC ACID
     Indication: BREAST CANCER
     Dosage: 22 DF,UNK, INJECTION
     Route: 065
     Dates: start: 201106, end: 201303
  5. EVEROLIMUS. [Suspect]
     Active Substance: EVEROLIMUS
     Indication: BREAST CANCER
     Route: 065
     Dates: start: 2013, end: 201401

REACTIONS (9)
  - Swelling [Recovered/Resolved]
  - Osteonecrosis of jaw [Recovered/Resolved]
  - Exposed bone in jaw [Recovered/Resolved]
  - Loose tooth [Recovered/Resolved]
  - Fistula [Recovered/Resolved]
  - Purulence [Recovered/Resolved]
  - Periodontal disease [Recovering/Resolving]
  - Gingival pain [Recovered/Resolved]
  - Pain [Recovered/Resolved]

NARRATIVE: CASE EVENT DATE: 20130131
